FAERS Safety Report 7279930 (Version 12)
Quarter: 2013Q2

REPORT INFORMATION
  Report Type: Report from Study
  Country: JP (occurrence: JP)
  Receive Date: 20100216
  Receipt Date: 20130409
  Transmission Date: 20140414
  Serious: Yes (Death, Life-Threatening, Hospitalization, Disabling, Other)
  Sender: FDA-Public Use
  Company Number: PHHY2010JP05882

PATIENT
  Age: 75 Year
  Sex: Male

DRUGS (37)
  1. AMN107 [Suspect]
     Indication: CHRONIC MYELOID LEUKAEMIA
     Dosage: 400 MG, DAILY
     Route: 048
     Dates: start: 20090525, end: 20090809
  2. AMN107 [Suspect]
     Dosage: 600 MG, DAILY
     Route: 048
     Dates: start: 20090810, end: 20091025
  3. AMN107 [Suspect]
     Dosage: 800 MG, DAILY
     Route: 048
     Dates: start: 20091026, end: 20091107
  4. AMN107 [Suspect]
     Dosage: 400 MG, DAILY
     Route: 048
     Dates: start: 20091110, end: 20100222
  5. AMN107 [Suspect]
     Dosage: 600 MG, DAILY
     Route: 048
     Dates: start: 20100223
  6. AMN107 [Suspect]
     Dosage: 600 MG, DAILY
     Route: 048
     Dates: start: 20100628, end: 20100711
  7. AMN107 [Suspect]
     Dosage: 800 MG, DAILY
     Route: 048
     Dates: start: 20100712, end: 20100905
  8. AMN107 [Suspect]
     Dosage: 600 MG, DAILY
     Route: 048
     Dates: start: 20100906, end: 20100916
  9. AMN107 [Suspect]
     Dosage: 200 MG, DAILY
     Route: 048
     Dates: start: 20101004, end: 20110130
  10. AMN107 [Suspect]
     Dosage: 400 MG, DAILY
     Route: 048
     Dates: start: 20110131, end: 20110306
  11. AMN107 [Suspect]
     Dosage: 600 MG, DAILY
     Route: 048
     Dates: start: 20110307, end: 20110412
  12. AMN107 [Suspect]
     Dosage: 200 MG, DAILY
     Route: 048
     Dates: start: 20110628, end: 20111019
  13. WARFARIN [Concomitant]
     Indication: ATRIAL FIBRILLATION
     Dosage: 1.5 MG/DAY
     Route: 048
     Dates: start: 20061121, end: 20090914
  14. WARFARIN [Concomitant]
     Dosage: 2 MG, QD
     Route: 048
     Dates: start: 20090915
  15. WARFARIN [Concomitant]
     Dosage: 3 MG/DAY
     Route: 048
     Dates: start: 20110603
  16. NORVASC [Concomitant]
     Indication: HYPERTENSION
     Dosage: 7.5 MG, UNK
     Route: 048
  17. NU-LOTAN [Concomitant]
     Indication: HYPERTENSION
     Dosage: 2.5 MG, UNK
     Route: 048
  18. LASIX [Concomitant]
     Indication: RENAL FAILURE CHRONIC
     Dosage: 10 MG, UNK
     Route: 048
  19. LASIX [Concomitant]
     Dosage: 20 MG, UNK
     Route: 042
     Dates: start: 20100914, end: 20100924
  20. LASIX [Concomitant]
     Dosage: 20 MG, UNK
  21. ZYLORIC [Concomitant]
     Indication: HYPERURICAEMIA
     Dosage: 1 DF
     Route: 048
  22. BEZATOL - SLOW RELEASE [Concomitant]
     Indication: HYPERLIPIDAEMIA
     Dosage: 400 MG
     Route: 048
     Dates: start: 20100910
  23. EPLERENONE [Concomitant]
     Indication: HYPERTENSION
     Dosage: 25 MG
     Route: 048
     Dates: start: 20090331, end: 20100430
  24. FOLIAMIN [Concomitant]
     Dosage: 2 DF
     Route: 048
     Dates: start: 20100506, end: 20100610
  25. RIVOTRIL [Concomitant]
     Dosage: 0.5 MG
     Route: 048
     Dates: start: 20100515, end: 20100910
  26. CALONAL [Concomitant]
     Dosage: 500 MG
     Route: 048
     Dates: start: 20100428
  27. PENTAGIN [Concomitant]
     Dosage: 25 MG
     Route: 048
     Dates: start: 20100506
  28. CERCINE [Concomitant]
     Dosage: 10 MG
     Dates: start: 20100919
  29. HANP [Concomitant]
     Dosage: 2 MG
     Route: 042
     Dates: start: 20100916, end: 20100924
  30. MEROPEN [Concomitant]
     Dosage: 2 G
     Route: 042
     Dates: start: 20110413, end: 20110417
  31. AMIKACIN SULFATE [Concomitant]
     Dosage: 300 MG
     Dates: start: 20110417, end: 20110424
  32. MODACIN [Concomitant]
     Dosage: 2 G
     Route: 042
     Dates: start: 20110418, end: 20110502
  33. HYDROCHLOROTHIAZIDE [Concomitant]
     Dosage: 6.5 MG
     Route: 048
     Dates: start: 20110630
  34. PARIET [Concomitant]
     Dosage: 10 MG
     Route: 048
     Dates: start: 20110630
  35. BULKOSE [Concomitant]
     Dosage: 3 G
     Route: 048
     Dates: start: 20110630
  36. HOKUNALIN [Concomitant]
     Indication: PROPHYLAXIS
     Dosage: 2 MG
     Route: 048
     Dates: start: 20110630
  37. PANVITAN [Concomitant]
     Dosage: 2 G
     Route: 048
     Dates: start: 20110630

REACTIONS (29)
  - Acute myocardial infarction [Fatal]
  - Cardiac failure congestive [Recovering/Resolving]
  - Septic shock [Recovered/Resolved]
  - Prothrombin time ratio increased [Recovering/Resolving]
  - Gastrointestinal haemorrhage [Recovering/Resolving]
  - Hypothyroidism [Recovered/Resolved with Sequelae]
  - Atrial fibrillation [Unknown]
  - Pseudomonas infection [Unknown]
  - Renal failure acute [Unknown]
  - Pleural effusion [Unknown]
  - Pulmonary congestion [Unknown]
  - Gamma-glutamyltransferase increased [Not Recovered/Not Resolved]
  - Dyschezia [Not Recovered/Not Resolved]
  - Movement disorder [Unknown]
  - Hypophosphataemia [Recovered/Resolved]
  - Oedema peripheral [Recovering/Resolving]
  - Pain in extremity [Recovering/Resolving]
  - Malaise [Unknown]
  - Muscle spasms [Unknown]
  - Muscular weakness [Unknown]
  - Gait disturbance [Unknown]
  - Glossoptosis [Unknown]
  - Pyrexia [Unknown]
  - Blood pressure decreased [Unknown]
  - Decreased appetite [Unknown]
  - Wheezing [Unknown]
  - Anaemia [Recovering/Resolving]
  - Eosinophil count increased [Not Recovered/Not Resolved]
  - Blood urea increased [Not Recovered/Not Resolved]
